FAERS Safety Report 8163321 (Version 6)
Quarter: 2013Q4

REPORT INFORMATION
  Report Type: Spontaneous
  Country: JP (occurrence: JP)
  Receive Date: 20110930
  Receipt Date: 20131230
  Transmission Date: 20140711
  Serious: Yes (Hospitalization, Other)
  Sender: FDA-Public Use
  Company Number: JP-BAYER-2011-092727

PATIENT
  Age: 69 Year
  Sex: Male
  Weight: 55 kg

DRUGS (6)
  1. NEXAVAR [Suspect]
     Indication: HEPATOCELLULAR CARCINOMA
     Dosage: DAILY DOSE 400 MG
     Route: 048
     Dates: start: 20110611, end: 20110915
  2. NEXAVAR [Suspect]
     Indication: HEPATOCELLULAR CARCINOMA
     Dosage: 800 MG DAILY
     Route: 048
     Dates: start: 2011, end: 2011
  3. RABEPRAZOLE [Concomitant]
     Dosage: DAILY DOSE 10 MG
     Route: 048
  4. ATENOLOL [Concomitant]
     Dosage: DAILY DOSE 50 MG
     Route: 048
  5. TRIAZOLAM [Concomitant]
     Dosage: DAILY DOSE .25 MG
     Route: 048
  6. FUROSEMIDE [Concomitant]
     Dosage: DAILY DOSE 20 MG

REACTIONS (4)
  - Gastrointestinal ulcer [Recovering/Resolving]
  - Gastrointestinal haemorrhage [Recovering/Resolving]
  - Anaemia [Recovered/Resolved]
  - Decreased appetite [Recovered/Resolved]
